FAERS Safety Report 16640694 (Version 1)
Quarter: 2019Q3

REPORT INFORMATION
  Report Type: Spontaneous
  Country: US (occurrence: US)
  Receive Date: 20190729
  Receipt Date: 20190729
  Transmission Date: 20191004
  Serious: Yes (Other)
  Sender: FDA-Public Use
  Company Number: US-STRIDES ARCOLAB LIMITED-2019SP003148

PATIENT
  Age: 6 Decade
  Sex: Female

DRUGS (13)
  1. ADALIMUMAB [Concomitant]
     Active Substance: ADALIMUMAB
     Indication: PULMONARY SARCOIDOSIS
     Dosage: UNK
     Route: 065
  2. INFLIXIMAB [Concomitant]
     Active Substance: INFLIXIMAB
     Indication: PULMONARY SARCOIDOSIS
     Dosage: UNK
     Route: 065
  3. MYCOPHENOLATE MOFETIL. [Suspect]
     Active Substance: MYCOPHENOLATE MOFETIL
     Indication: PULMONARY SARCOIDOSIS
     Dosage: UNK
     Route: 065
  4. AZATHIOPRINE. [Suspect]
     Active Substance: AZATHIOPRINE
     Indication: PULMONARY SARCOIDOSIS
     Dosage: UNK
     Route: 065
  5. TOCILIZUMAB. [Suspect]
     Active Substance: TOCILIZUMAB
     Dosage: 162 MG, ONCE A WEEK
     Route: 058
  6. PREDNISOLONE. [Concomitant]
     Active Substance: PREDNISOLONE
     Indication: PULMONARY SARCOIDOSIS
     Dosage: UNK
     Route: 065
  7. METHOTREXATE. [Concomitant]
     Active Substance: METHOTREXATE
     Indication: PULMONARY SARCOIDOSIS
     Dosage: 5 MG, UNK
     Route: 065
  8. TOCILIZUMAB. [Suspect]
     Active Substance: TOCILIZUMAB
     Indication: PULMONARY SARCOIDOSIS
     Dosage: 4 MG/KG, ONCE A MONTH
     Route: 058
  9. PREDNISOLONE. [Concomitant]
     Active Substance: PREDNISOLONE
     Dosage: 5 MG, UNK
     Route: 065
  10. LEFLUNOMIDE. [Concomitant]
     Active Substance: LEFLUNOMIDE
     Indication: PULMONARY SARCOIDOSIS
     Dosage: UNK
     Route: 065
  11. TOCILIZUMAB. [Suspect]
     Active Substance: TOCILIZUMAB
     Dosage: 8 MG/KG, ONCE A MONTH
     Route: 058
  12. HYDROXYCHLOROQUINE [Concomitant]
     Active Substance: HYDROXYCHLOROQUINE
     Indication: PULMONARY SARCOIDOSIS
     Dosage: UNK
     Route: 065
  13. MINOCYCLINE [Concomitant]
     Active Substance: MINOCYCLINE HYDROCHLORIDE
     Indication: PULMONARY SARCOIDOSIS
     Dosage: UNK
     Route: 065

REACTIONS (3)
  - Drug ineffective for unapproved indication [Unknown]
  - Leukopenia [Unknown]
  - Bronchitis [Recovered/Resolved]
